FAERS Safety Report 15061902 (Version 1)
Quarter: 2018Q2

REPORT INFORMATION
  Report Type: Report from Study
  Country: US (occurrence: US)
  Receive Date: 20180625
  Receipt Date: 20180625
  Transmission Date: 20180711
  Serious: Yes (Other)
  Sender: FDA-Public Use
  Company Number: US-BAYER-2018-079529

PATIENT
  Age: 53 Year
  Sex: Male

DRUGS (2)
  1. NEXAVAR [Suspect]
     Active Substance: SORAFENIB
     Indication: HEPATOCELLULAR CARCINOMA
     Dosage: 400 MG, BID
     Route: 048
     Dates: start: 20180408, end: 20180423
  2. NEXAVAR [Suspect]
     Active Substance: SORAFENIB
     Indication: HEPATOCELLULAR CARCINOMA
     Dosage: 200 MG, BID
     Route: 048
     Dates: start: 20180424

REACTIONS (12)
  - Pruritus [Recovering/Resolving]
  - Pyrexia [Recovering/Resolving]
  - Tumour necrosis [None]
  - Exercise tolerance decreased [Not Recovered/Not Resolved]
  - Decreased appetite [None]
  - Hepatic enzyme increased [Recovering/Resolving]
  - Blood pressure increased [Recovering/Resolving]
  - Vessel puncture site pain [None]
  - Diarrhoea [Not Recovered/Not Resolved]
  - Acne [None]
  - Chills [None]
  - Pain [None]

NARRATIVE: CASE EVENT DATE: 2018
